FAERS Safety Report 4710543-9 (Version None)
Quarter: 2005Q3

REPORT INFORMATION
  Report Type: 
  Country: None (occurrence: None)
  Receive Date: 20050707
  Receipt Date: 20050616
  Transmission Date: 20060218
  Serious: Yes (Other)
  Sender: FDA-Public Use
  Company Number: DE_050616175

PATIENT
  Age: 56 Year
  Sex: Male

DRUGS (4)
  1. CYMBALTA [Suspect]
     Indication: DEPRESSION
     Dosage: 60 MG
     Dates: start: 20050607, end: 20050609
  2. CYMBALTA [Suspect]
     Indication: PAIN
     Dosage: 60 MG
     Dates: start: 20050607, end: 20050609
  3. TRAMADOL HCL [Concomitant]
  4. METFORMIN [Concomitant]

REACTIONS (4)
  - EPISTAXIS [None]
  - HYPERTENSION [None]
  - NAUSEA [None]
  - VOMITING [None]
